FAERS Safety Report 5246425-6 (Version None)
Quarter: 2007Q1

REPORT INFORMATION
  Report Type: 
  Country: None (occurrence: None)
  Receive Date: 20070226
  Receipt Date: 20070223
  Transmission Date: 20070707
  Serious: Yes (Life-Threatening, Hospitalization)
  Sender: FDA-Public Use
  Company Number: US-RB-005159-07

PATIENT
  Sex: Female

DRUGS (7)
  1. SUBOXONE [Suspect]
     Route: 060
     Dates: start: 20060527, end: 20060529
  2. SUBOXONE [Suspect]
     Route: 060
     Dates: start: 20060530, end: 20070202
  3. SUBOXONE [Suspect]
     Dosage: PATIENT TAKING 3 1/2 TABLETS DAILY
     Route: 060
     Dates: start: 20070203
  4. LEXAPRO [Concomitant]
     Indication: DEPRESSION
     Route: 048
  5. LEXAPRO [Concomitant]
     Indication: ANXIETY
     Route: 048
  6. TRILEPTAL [Concomitant]
     Route: 048
  7. ALCOHOL [Suspect]
     Indication: DRUG USE FOR UNKNOWN INDICATION
     Dosage: UNKNOWN AMOUNT OF ALCOHOL CONSUMED.
     Route: 048
     Dates: start: 20070201, end: 20070205

REACTIONS (1)
  - ALCOHOL POISONING [None]
